FAERS Safety Report 17545558 (Version 1)
Quarter: 2020Q1

REPORT INFORMATION
  Report Type: Spontaneous
  Country: US (occurrence: US)
  Receive Date: 20200316
  Receipt Date: 20200316
  Transmission Date: 20200409
  Serious: Yes (Other)
  Sender: FDA-Public Use
  Company Number: US-BAYER-2020-039530

PATIENT
  Age: 63 Year
  Sex: Female

DRUGS (2)
  1. MIRENA [Suspect]
     Active Substance: LEVONORGESTREL
     Indication: POSTMENOPAUSAL HAEMORRHAGE
     Dosage: 20 ?G PER DAY,CONTINUOSLY
     Route: 015
     Dates: start: 20190225
  2. MIRENA [Suspect]
     Active Substance: LEVONORGESTREL
     Indication: POSTMENOPAUSAL HAEMORRHAGE
     Dosage: 20 ?G PER DAY,CONTINUOSLY
     Route: 015

REACTIONS (3)
  - Intra-uterine contraceptive device removal [None]
  - Genital haemorrhage [Not Recovered/Not Resolved]
  - Alopecia [Not Recovered/Not Resolved]
